FAERS Safety Report 24973048 (Version 1)
Quarter: 2025Q1

REPORT INFORMATION
  Report Type: Spontaneous
  Country: US (occurrence: US)
  Receive Date: 20250216
  Receipt Date: 20250216
  Transmission Date: 20250408
  Serious: No
  Sender: ABBVIE
  Company Number: US-ABBVIE-6130129

PATIENT
  Age: 8 Year
  Sex: Female
  Weight: 22.679 kg

DRUGS (5)
  1. HUMIRA [Suspect]
     Active Substance: ADALIMUMAB
     Indication: Uveitis
     Dosage: FORM STRENGTH:20 MILLIGRAM
     Route: 058
     Dates: start: 20250127
  2. METHOTREXATE [Concomitant]
     Active Substance: METHOTREXATE
     Indication: Uveitis
  3. FOLIC ACID [Concomitant]
     Active Substance: FOLIC ACID
     Indication: Adjuvant therapy
  4. PREDNISONE [Concomitant]
     Active Substance: PREDNISONE
     Indication: Uveitis
     Route: 047
  5. PREDNISOLONE [Concomitant]
     Active Substance: PREDNISOLONE
     Indication: Uveitis
     Route: 048

REACTIONS (1)
  - Influenza [Recovered/Resolved]

NARRATIVE: CASE EVENT DATE: 20250205
